FAERS Safety Report 5824856-0 (Version None)
Quarter: 2008Q3

REPORT INFORMATION
  Report Type: 
  Country: None (occurrence: None)
  Receive Date: 20080728
  Receipt Date: 20080709
  Transmission Date: 20090109
  Serious: No
  Sender: FDA-Public Use
  Company Number: US-BOEHRINGER INGELHEIM GMBH, GERMANY-2008-BP-09924BP

PATIENT
  Sex: Male

DRUGS (21)
  1. SPIRIVA [Suspect]
     Indication: CHRONIC OBSTRUCTIVE PULMONARY DISEASE
     Dates: start: 20041001
  2. SPIRIVA [Suspect]
     Indication: EMPHYSEMA
  3. ALBUTEROL SULFATE [Concomitant]
     Indication: CHRONIC OBSTRUCTIVE PULMONARY DISEASE
     Route: 055
  4. ALBUTEROL SULFATE [Concomitant]
     Indication: EMPHYSEMA
  5. LASIX [Concomitant]
  6. TRUSOPT OPHTH [Concomitant]
  7. ASMANEX TWISTHALER [Concomitant]
     Route: 055
  8. COMBIVENT [Concomitant]
  9. OMEGA 3 FISH OIL CAPS [Concomitant]
  10. GUAIFENESIN [Concomitant]
  11. CENTRUM [Concomitant]
  12. MULTIVITAMIN [Concomitant]
  13. VITAMIN E [Concomitant]
  14. AVODART [Concomitant]
  15. COENZYME Q10 [Concomitant]
  16. PROCARDIA XL [Concomitant]
  17. CRESTOR [Concomitant]
  18. LISINOPRIL [Concomitant]
  19. FLOMAX [Concomitant]
  20. SINGULAIR [Concomitant]
  21. HYTRIN [Concomitant]

REACTIONS (2)
  - BENIGN PROSTATIC HYPERPLASIA [None]
  - URINE FLOW DECREASED [None]
